FAERS Safety Report 23822043 (Version 1)
Quarter: 2024Q2

REPORT INFORMATION
  Report Type: Spontaneous
  Country: TR (occurrence: TR)
  Receive Date: 20240506
  Receipt Date: 20240506
  Transmission Date: 20240715
  Serious: Yes (Hospitalization, Other)
  Sender: FDA-Public Use
  Company Number: TR-SUN PHARMACEUTICAL INDUSTRIES LTD-2024R1-444802

PATIENT
  Age: 12 Month
  Sex: Male

DRUGS (2)
  1. AMPICILLIN SODIUM\SULBACTAM SODIUM [Suspect]
     Active Substance: AMPICILLIN SODIUM\SULBACTAM SODIUM
     Indication: Pharyngeal abscess
     Dosage: 150 MILLIGRAM/KILOGRAM, DAILY
     Route: 065
  2. CLINDAMYCIN [Suspect]
     Active Substance: CLINDAMYCIN
     Indication: Pharyngeal abscess
     Dosage: 40 MILLIGRAM/KILOGRAM, DAILY
     Route: 065

REACTIONS (5)
  - Drug ineffective [Unknown]
  - Klebsiella infection [Recovered/Resolved]
  - Dyspnoea [Recovered/Resolved]
  - Upper airway obstruction [Recovered/Resolved]
  - Respiratory distress [Recovered/Resolved]
